FAERS Safety Report 21028351 (Version 1)
Quarter: 2022Q2

REPORT INFORMATION
  Report Type: Spontaneous
  Country: US (occurrence: None)
  Receive Date: 20220630
  Receipt Date: 20220630
  Transmission Date: 20220721
  Serious: Yes (Hospitalization)
  Sender: FDA-Public Use
  Company Number: None

PATIENT
  Age: 56 Year
  Sex: Male
  Weight: 91.4 kg

DRUGS (15)
  1. PEMBROLIZUMAB [Suspect]
     Active Substance: PEMBROLIZUMAB
     Indication: Laryngeal squamous cell carcinoma
     Dosage: FREQUENCY : ONCE;?
     Route: 042
     Dates: start: 20220512, end: 20220512
  2. External beam radiation therapy [Concomitant]
  3. ACETAMINOPHEN [Concomitant]
     Active Substance: ACETAMINOPHEN
  4. FIRST BLM MOUTHWASH [Concomitant]
  5. LEVOTHYROXINE [Concomitant]
     Active Substance: LEVOTHYROXINE
  6. MELOXICAM [Concomitant]
     Active Substance: MELOXICAM
  7. NYSTATIN [Concomitant]
     Active Substance: NYSTATIN
  8. OMEPRAZOLE [Concomitant]
     Active Substance: OMEPRAZOLE
  9. OXYCODONE [Concomitant]
     Active Substance: OXYCODONE
  10. TRAMADOL [Concomitant]
     Active Substance: TRAMADOL
  11. GABAPENTIN [Concomitant]
     Active Substance: GABAPENTIN
  12. METHYLPREDNISOLONE [Concomitant]
     Active Substance: METHYLPREDNISOLONE
  13. REMEDY CREAM [Concomitant]
  14. BACITRACIN-POLYMYXIN B (POLYSPORIN) [Concomitant]
  15. AUGMENTIN [Concomitant]
     Active Substance: AMOXICILLIN\CLAVULANATE POTASSIUM

REACTIONS (11)
  - Swelling [None]
  - Postoperative wound infection [None]
  - Erythema [None]
  - Pain [None]
  - Chills [None]
  - Enterococcus test positive [None]
  - Klebsiella test positive [None]
  - Escherichia test positive [None]
  - Abscess [None]
  - Bacterial infection [None]
  - Stenotrophomonas test positive [None]

NARRATIVE: CASE EVENT DATE: 20220622
